FAERS Safety Report 9617424 (Version 2)
Quarter: 2014Q1

REPORT INFORMATION
  Report Type: Spontaneous
  Country: JP (occurrence: JP)
  Receive Date: 20131011
  Receipt Date: 20140326
  Transmission Date: 20141002
  Serious: Yes (Hospitalization)
  Sender: FDA-Public Use
  Company Number: PHHY2013JP113605

PATIENT
  Age: 33 Year
  Sex: Female
  Weight: 60 kg

DRUGS (13)
  1. GILENYA [Suspect]
     Indication: MULTIPLE SCLEROSIS
     Dosage: 0.5 MG, DAILY
     Route: 048
     Dates: start: 20130204, end: 20130830
  2. CARBAMAZEPINE [Concomitant]
     Indication: STATUS EPILEPTICUS
     Dosage: 600 MG, UNK
     Route: 048
  3. E KEPPRA [Concomitant]
     Indication: STATUS EPILEPTICUS
     Dosage: 1000 MG, UNK
     Route: 048
  4. E KEPPRA [Concomitant]
     Dosage: 2000 MG, QD
     Route: 048
  5. SYMMETREL [Concomitant]
     Dosage: 100 MG, UNK
     Route: 048
  6. DONEPEZIL HYDROCHLORIDE [Concomitant]
     Dosage: 6 MG, UNK
     Route: 048
  7. FERROMIA [Concomitant]
     Dosage: 50 MG, UNK
     Route: 048
  8. MEMARY [Concomitant]
     Dosage: 10 MG, UNK
     Route: 048
  9. VESICARE [Concomitant]
     Dosage: 10 MG, UNK
     Route: 048
  10. MUCODYNE [Concomitant]
     Dosage: 750 MG, UNK
     Route: 048
  11. ERYTHROCIN                              /CAN/ [Concomitant]
     Dosage: 100 MG, UNK
     Route: 048
  12. RINDERON [Concomitant]
     Dosage: 1.5 MG, UNK
     Route: 048
  13. LIPITOR [Concomitant]
     Dosage: 5 MG, UNK
     Route: 048

REACTIONS (1)
  - Convulsion [Recovering/Resolving]
